FAERS Safety Report 9407702 (Version 1)
Quarter: 2013Q3

REPORT INFORMATION
  Report Type: Spontaneous
  Country: US (occurrence: US)
  Receive Date: 20130718
  Receipt Date: 20130718
  Transmission Date: 20140515
  Serious: No
  Sender: FDA-Public Use
  Company Number: US-PFIZER INC-2013208788

PATIENT
  Age: 38 Year
  Sex: Female
  Weight: 72.56 kg

DRUGS (1)
  1. ADVIL CONGESTION RELIEF [Suspect]
     Indication: LOWER RESPIRATORY TRACT INFECTION
     Dosage: 200/10MG, THREE TIMES A DAY
     Dates: start: 201307

REACTIONS (1)
  - Rash erythematous [Unknown]
